FAERS Safety Report 8409819-3 (Version None)
Quarter: 2012Q2

REPORT INFORMATION
  Report Type: 
  Country: None (occurrence: None)
  Receive Date: 20120605
  Receipt Date: 20120531
  Transmission Date: 20120825
  Serious: No
  Sender: FDA-Public Use
  Company Number: US-PFIZER INC-2012131616

PATIENT
  Sex: Female

DRUGS (1)
  1. NEURONTIN [Suspect]
     Indication: NERVE COMPRESSION
     Dosage: UNK, 1X/DAY
     Route: 048
     Dates: start: 20110101

REACTIONS (1)
  - PRURITUS [None]
